FAERS Safety Report 17370607 (Version 2)
Quarter: 2020Q1

REPORT INFORMATION
  Report Type: Spontaneous
  Country: US (occurrence: US)
  Receive Date: 20200205
  Receipt Date: 20200316
  Transmission Date: 20200409
  Serious: Yes (Death, Life-Threatening, Hospitalization, Other)
  Sender: FDA-Public Use
  Company Number: US-LUPIN PHARMACEUTICALS INC.-2020-00530

PATIENT
  Age: 56 Year
  Sex: Female

DRUGS (1)
  1. ESCITALOPRAM [Suspect]
     Active Substance: ESCITALOPRAM OXALATE
     Indication: DEPRESSION
     Dosage: 20 MILLIGRAM, QD
     Route: 065

REACTIONS (5)
  - Coma [Not Recovered/Not Resolved]
  - Haemorrhage intracranial [Fatal]
  - Intraventricular haemorrhage [Fatal]
  - Vasospasm [Fatal]
  - Subarachnoid haemorrhage [Fatal]
